FAERS Safety Report 8567781-7 (Version None)
Quarter: 2012Q3

REPORT INFORMATION
  Report Type: 
  Country: None (occurrence: None)
  Receive Date: 20120803
  Receipt Date: 20120723
  Transmission Date: 20120928
  Serious: Yes (Death, Hospitalization)
  Sender: FDA-Public Use
  Company Number: US-JNJFOC-20120109458

PATIENT
  Sex: Male
  Weight: 78.93 kg

DRUGS (19)
  1. CLIMARA [Concomitant]
     Indication: PRODUCT USED FOR UNKNOWN INDICATION
  2. PREDNISONE [Concomitant]
  3. FERROUS SULFATE TAB [Concomitant]
  4. VITAMIN D [Concomitant]
  5. REMICADE [Suspect]
     Dosage: DISCONTINUED JUNE OR AUGUST 2008
     Route: 042
     Dates: start: 20040101, end: 20080901
  6. AMITRIPTYLINE HCL [Concomitant]
  7. VITAMIN B-12 [Concomitant]
  8. ANTIBIOTICS [Concomitant]
  9. FLAGYL [Concomitant]
  10. IMURAN [Suspect]
     Indication: CROHN'S DISEASE
     Dates: start: 20080101, end: 20100201
  11. WARFARIN SODIUM [Concomitant]
  12. LOVAZA [Concomitant]
  13. CALCIUM [Concomitant]
  14. HUMIRA [Suspect]
     Indication: CROHN'S DISEASE
     Dosage: START DATE APPROXIMATELY JUNE OR AUGUST
     Dates: start: 20080101, end: 20100201
  15. REMICADE [Suspect]
     Indication: CROHN'S DISEASE
     Route: 042
     Dates: start: 20040101
  16. PRILOSEC [Concomitant]
  17. VITAMIN A [Concomitant]
  18. ASCORBIC ACID [Concomitant]
  19. NORCO [Concomitant]

REACTIONS (5)
  - DRUG INEFFECTIVE [None]
  - CROHN'S DISEASE [None]
  - MYELOID LEUKAEMIA [None]
  - GASTROINTESTINAL HAEMORRHAGE [None]
  - ANAEMIA [None]
